FAERS Safety Report 18365754 (Version 1)
Quarter: 2020Q4

REPORT INFORMATION
  Report Type: Spontaneous
  Country: US (occurrence: US)
  Receive Date: 20201009
  Receipt Date: 20201009
  Transmission Date: 20210114
  Serious: No
  Sender: FDA-Public Use
  Company Number: None

PATIENT
  Age: 34 Year
  Sex: Female
  Weight: 58.5 kg

DRUGS (8)
  1. METHYLPHENIDATE (CONCERTA) GENERIC 36 MG [Suspect]
     Active Substance: METHYLPHENIDATE
     Indication: ATTENTION DEFICIT HYPERACTIVITY DISORDER
     Route: 048
     Dates: start: 20190301, end: 20190501
  2. METHYLPHENIDATE (CONCERTA) GENERIC 36 MG [Suspect]
     Active Substance: METHYLPHENIDATE
     Indication: ANXIETY
     Route: 048
     Dates: start: 20190301, end: 20190501
  3. LAMICATAL [Concomitant]
  4. VITAMIN C [Concomitant]
     Active Substance: ASCORBIC ACID
  5. METHYLPHENIDATE (CONCERTA) GENERIC 36 MG [Suspect]
     Active Substance: METHYLPHENIDATE
     Indication: ANXIETY
     Dosage: ?          QUANTITY:1 TABLET(S);?
     Route: 048
     Dates: start: 20190301, end: 20190501
  6. CONCERTA [Concomitant]
     Active Substance: METHYLPHENIDATE HYDROCHLORIDE
  7. MULTI-VITAMIN [Concomitant]
     Active Substance: .ALPHA.-TOCOPHEROL ACETATE, DL-\ASCORBIC ACID\CYANOCOBALAMIN\FLUORIDE ION\FOLIC ACID\NIACIN\PYRIDOXINE\RIBOFLAVIN\THIAMINE\VITAMIN A\VITAMIN D
  8. METHYLPHENIDATE (CONCERTA) GENERIC 36 MG [Suspect]
     Active Substance: METHYLPHENIDATE
     Indication: ATTENTION DEFICIT HYPERACTIVITY DISORDER
     Dosage: ?          QUANTITY:1 TABLET(S);?
     Route: 048
     Dates: start: 20190301, end: 20190501

REACTIONS (5)
  - Photophobia [None]
  - Headache [None]
  - Product substitution issue [None]
  - Palpitations [None]
  - Affect lability [None]

NARRATIVE: CASE EVENT DATE: 20190401
